FAERS Safety Report 8812669 (Version 1)
Quarter: 2012Q4

REPORT INFORMATION
  Report Type: 
  Country: GB (occurrence: GB)
  Receive Date: 20120927
  Receipt Date: 20120927
  Transmission Date: 20130627
  Serious: Yes (Hospitalization, Congenital Anomaly, Other)
  Sender: FDA-Public Use
  Company Number: PHHY2012GB082050

PATIENT
  Sex: Male

DRUGS (1)
  1. SERTRALINE [Suspect]
     Route: 064

REACTIONS (3)
  - Coloboma [Not Recovered/Not Resolved]
  - Congenital eye disorder [Not Recovered/Not Resolved]
  - Foetal exposure during pregnancy [Unknown]
